FAERS Safety Report 8131079-1 (Version None)
Quarter: 2012Q1

REPORT INFORMATION
  Report Type: 
  Country: None (occurrence: None)
  Receive Date: 20120209
  Receipt Date: 20120209
  Transmission Date: 20120608
  Serious: Yes (Other)
  Sender: FDA-Public Use
  Company Number: None

PATIENT
  Age: 30 Year
  Sex: Female
  Weight: 67.1324 kg

DRUGS (1)
  1. TOPIRAMATE [Suspect]
     Indication: CONVULSION
     Dosage: 25 MG ONE BID
     Dates: start: 20090101

REACTIONS (4)
  - DIZZINESS [None]
  - ANXIETY [None]
  - CONVULSION [None]
  - HEADACHE [None]
